FAERS Safety Report 5008352-9 (Version None)
Quarter: 2006Q2

REPORT INFORMATION
  Report Type: 
  Country: None (occurrence: None)
  Receive Date: 20060404
  Receipt Date: 20060216
  Transmission Date: 20061013
  Serious: No
  Sender: FDA-Public Use
  Company Number: US200601005462

PATIENT
  Age: 58 Year
  Sex: Female
  Weight: 63.5 kg

DRUGS (6)
  1. CYMBALTA [Suspect]
     Indication: MAJOR DEPRESSION
     Dosage: 30 MG, TABLET, ORAL
     Route: 048
     Dates: start: 20060112, end: 20060113
  2. WELLBUTRIN SR [Concomitant]
  3. GLUCOPHAGE [Concomitant]
  4. PREMARIN [Concomitant]
  5. MICARDIS HCT [Concomitant]
  6. MOBIC [Concomitant]

REACTIONS (2)
  - BLOOD PRESSURE INCREASED [None]
  - NAUSEA [None]
